FAERS Safety Report 8556609-7 (Version None)
Quarter: 2012Q3

REPORT INFORMATION
  Report Type: 
  Country: None (occurrence: None)
  Receive Date: 20120801
  Receipt Date: 20120723
  Transmission Date: 20120928
  Serious: Yes (Hospitalization)
  Sender: FDA-Public Use
  Company Number: CA-BRISTOL-MYERS SQUIBB COMPANY-16262297

PATIENT
  Age: 65 Year
  Sex: Female

DRUGS (9)
  1. IPILIMUMAB [Suspect]
     Indication: MALIGNANT MELANOMA
     Dosage: 18OCT11 REINDUCTION 200MG ON 13APR12-15JUN12
     Route: 042
     Dates: start: 20110817
  2. MULTIVITAMINS + IRON [Concomitant]
     Dates: start: 20120420
  3. LEVOTHYROXINE SODIUM [Concomitant]
     Route: 048
     Dates: start: 20111104
  4. LEVAQUIN [Concomitant]
     Dates: start: 20111129
  5. DILANTIN [Concomitant]
     Dates: start: 20111201
  6. METOPROLOL TARTRATE [Concomitant]
     Route: 048
     Dates: start: 20080101
  7. RANITIDINE [Concomitant]
     Route: 048
     Dates: start: 20111011
  8. DIOVAN [Concomitant]
     Route: 048
     Dates: start: 20090101
  9. DEXAMETHASONE [Concomitant]
     Dates: start: 20111007

REACTIONS (2)
  - CONVULSION [None]
  - PYREXIA [None]
